FAERS Safety Report 23798246 (Version 1)
Quarter: 2024Q2

REPORT INFORMATION
  Report Type: Other
  Country: US (occurrence: US)
  Receive Date: 20240430
  Receipt Date: 20240430
  Transmission Date: 20240717
  Serious: Yes (Hospitalization)
  Sender: FDA-Public Use
  Company Number: US-Bion-012913

PATIENT
  Age: 49 Year
  Sex: Male

DRUGS (13)
  1. AMANTADINE HYDROCHLORIDE [Suspect]
     Active Substance: AMANTADINE HYDROCHLORIDE
     Indication: Schizophrenia
  2. VALPROIC ACID [Suspect]
     Active Substance: VALPROIC ACID
     Indication: Schizophrenia
     Route: 042
  3. CHLORPROMAZINE [Concomitant]
     Active Substance: CHLORPROMAZINE
     Indication: Schizophrenia
  4. DIAZEPAM [Concomitant]
     Active Substance: DIAZEPAM
     Indication: Schizophrenia
  5. QUETIAPINE [Concomitant]
     Active Substance: QUETIAPINE
     Indication: Schizophrenia
  6. ARIPIPRAZOLE [Concomitant]
     Active Substance: ARIPIPRAZOLE
     Indication: Schizophrenia
  7. LITHIUM [Concomitant]
     Active Substance: LITHIUM
     Indication: Schizophrenia
  8. PIMAVANSERIN [Concomitant]
     Active Substance: PIMAVANSERIN
     Indication: Schizophrenia
  9. LORAZEPAM [Concomitant]
     Active Substance: LORAZEPAM
     Indication: Schizophrenia
  10. AMANTADINE HYDROCHLORIDE [Suspect]
     Active Substance: AMANTADINE HYDROCHLORIDE
     Indication: Malignant catatonia
  11. DIAZEPAM [Concomitant]
     Active Substance: DIAZEPAM
     Indication: Malignant catatonia
  12. LITHIUM [Concomitant]
     Active Substance: LITHIUM
     Indication: Malignant catatonia
  13. LORAZEPAM [Concomitant]
     Active Substance: LORAZEPAM
     Indication: Malignant catatonia

REACTIONS (2)
  - Psychotic disorder [Unknown]
  - Drug ineffective for unapproved indication [Not Recovered/Not Resolved]
